FAERS Safety Report 10110656 (Version 2)
Quarter: 2014Q3

REPORT INFORMATION
  Report Type: Spontaneous
  Country: US (occurrence: US)
  Receive Date: 20140425
  Receipt Date: 20140929
  Transmission Date: 20150326
  Serious: Yes (Death)
  Sender: FDA-Public Use
  Company Number: US-AMGEN-USASP2014029500

PATIENT
  Age: 57 Year
  Sex: Female
  Weight: 40.36 kg

DRUGS (2)
  1. PROLIA [Suspect]
     Active Substance: DENOSUMAB
     Dosage: UNK
     Route: 058
     Dates: start: 20131023
  2. PROLIA [Suspect]
     Active Substance: DENOSUMAB
     Indication: OSTEOPOROSIS
     Dosage: 60 CC, Q6MO
     Route: 065
     Dates: start: 20130418

REACTIONS (3)
  - Bronchopneumonia [Fatal]
  - Acute respiratory failure [Fatal]
  - Pulmonary embolism [Fatal]
